FAERS Safety Report 20517370 (Version 1)
Quarter: 2022Q1

REPORT INFORMATION
  Report Type: Spontaneous
  Country: BR (occurrence: None)
  Receive Date: 20220225
  Receipt Date: 20220225
  Transmission Date: 20220423
  Serious: Yes (Hospitalization, Other)
  Sender: FDA-Public Use
  Company Number: 2022A086143

PATIENT
  Sex: Female

DRUGS (2)
  1. QTERN [Suspect]
     Active Substance: DAPAGLIFLOZIN\SAXAGLIPTIN HYDROCHLORIDE
     Route: 048
  2. INSULIN NOS [Concomitant]
     Active Substance: INSULIN NOS

REACTIONS (1)
  - Ketoacidosis [Recovering/Resolving]
